FAERS Safety Report 20236084 (Version 3)
Quarter: 2022Q1

REPORT INFORMATION
  Report Type: Spontaneous
  Country: JP (occurrence: JP)
  Receive Date: 20211228
  Receipt Date: 20220310
  Transmission Date: 20220424
  Serious: Yes (Hospitalization, Other)
  Sender: FDA-Public Use
  Company Number: JP-ASTELLAS-2021JP021287

PATIENT
  Age: 45 Year
  Sex: Female
  Weight: 60 kg

DRUGS (15)
  1. TACROLIMUS [Suspect]
     Active Substance: TACROLIMUS
     Indication: Immunosuppressant drug therapy
     Route: 048
     Dates: start: 20180306
  2. TACROLIMUS [Suspect]
     Active Substance: TACROLIMUS
     Indication: Renal transplant
  3. MYCOPHENOLATE MOFETIL [Concomitant]
     Active Substance: MYCOPHENOLATE MOFETIL
     Indication: Immunosuppressant drug therapy
     Dosage: 1000 MG/DAY, UNKNOWN FREQ.
     Route: 048
  4. ESTROGENS [Concomitant]
     Active Substance: ESTROGENS
     Indication: Infertility female
     Dosage: UNK UNK, UNKNOWN FREQ.
     Route: 065
  5. CLOMIPHENE [Concomitant]
     Active Substance: CLOMIPHENE
     Indication: Infertility female
     Dosage: UNK UNK, UNKNOWN FREQ.
     Route: 048
  6. AMLODIPINE [Concomitant]
     Active Substance: AMLODIPINE BESYLATE
     Indication: Blood pressure management
     Dosage: 10 MG/DAY, UNKNOWN FREQ.
     Route: 048
  7. LANSOPRAZOLE [Concomitant]
     Active Substance: LANSOPRAZOLE
     Indication: Chronic gastritis
     Route: 048
     Dates: start: 20171112
  8. MEDROL [Concomitant]
     Active Substance: METHYLPREDNISOLONE
     Indication: Immunosuppressant drug therapy
     Route: 048
     Dates: start: 20171207
  9. MEDROL [Concomitant]
     Active Substance: METHYLPREDNISOLONE
     Indication: Renal transplant
  10. MAGNESIUM OXIDE [Concomitant]
     Active Substance: MAGNESIUM OXIDE
     Indication: Constipation
     Route: 048
     Dates: start: 20180207
  11. FERRIC SODIUM CITRATE [Concomitant]
     Active Substance: FERRIC SODIUM CITRATE
     Indication: Iron deficiency anaemia
     Route: 048
     Dates: start: 20180921
  12. IMURAN [Concomitant]
     Active Substance: AZATHIOPRINE
     Indication: Immunosuppressant drug therapy
     Route: 048
     Dates: start: 20190524
  13. IMURAN [Concomitant]
     Active Substance: AZATHIOPRINE
     Indication: Renal transplant
  14. METHYLDOPA [Concomitant]
     Active Substance: METHYLDOPA
     Indication: Blood pressure management
     Route: 048
     Dates: start: 20190618
  15. METHYLDOPA [Concomitant]
     Active Substance: METHYLDOPA
     Indication: Hypertension

REACTIONS (2)
  - Abortion missed [Recovering/Resolving]
  - Maternal exposure during pregnancy [Unknown]

NARRATIVE: CASE EVENT DATE: 20191004
